FAERS Safety Report 24646598 (Version 1)
Quarter: 2024Q4

REPORT INFORMATION
  Report Type: Spontaneous
  Country: GB (occurrence: GB)
  Receive Date: 20241121
  Receipt Date: 20241121
  Transmission Date: 20250114
  Serious: No
  Sender: BIOTEST
  Company Number: GB-BIOTEST-014878

PATIENT

DRUGS (1)
  1. YIMMUGO [Suspect]
     Active Substance: HUMAN IMMUNOGLOBULIN G-DIRA
     Indication: Product used for unknown indication

REACTIONS (1)
  - Tinnitus [Unknown]
